FAERS Safety Report 9813533 (Version 2)
Quarter: 2014Q1

REPORT INFORMATION
  Report Type: Spontaneous
  Country: US (occurrence: US)
  Receive Date: 20140113
  Receipt Date: 20140203
  Transmission Date: 20141002
  Serious: No
  Sender: FDA-Public Use
  Company Number: US-PFIZER INC-2014008145

PATIENT
  Age: 52 Year
  Sex: Female
  Weight: 90.7 kg

DRUGS (1)
  1. ADVIL [Suspect]
     Indication: HEADACHE
     Dosage: 600 MG, AS NEEDED
     Route: 048
     Dates: start: 2013, end: 20140108

REACTIONS (3)
  - Drug ineffective [Unknown]
  - Medication overuse headache [Unknown]
  - Malaise [Unknown]
